FAERS Safety Report 5200115-4 (Version None)
Quarter: 2007Q1

REPORT INFORMATION
  Report Type: 
  Country: None (occurrence: None)
  Receive Date: 20070105
  Receipt Date: 20061228
  Transmission Date: 20070707
  Serious: Yes (Hospitalization)
  Sender: FDA-Public Use
  Company Number: DE-GLAXOSMITHKLINE-D0051391A

PATIENT
  Age: 67 Year
  Sex: Male
  Weight: 96 kg

DRUGS (3)
  1. AVANDAMET [Suspect]
     Route: 048
     Dates: start: 20051208, end: 20061027
  2. NEBILET [Concomitant]
     Dosage: 5MG PER DAY
     Route: 048
  3. LISINOPRIL [Concomitant]
     Dosage: 20MG PER DAY
     Route: 048

REACTIONS (6)
  - GASTRITIS HAEMORRHAGIC [None]
  - HELICOBACTER PYLORI IDENTIFICATION TEST POSITIVE [None]
  - NEPHROGENIC ANAEMIA [None]
  - NORMOCHROMIC NORMOCYTIC ANAEMIA [None]
  - PROTEINURIA [None]
  - RENAL FAILURE [None]
